FAERS Safety Report 25907098 (Version 1)
Quarter: 2025Q4

REPORT INFORMATION
  Report Type: Spontaneous
  Country: GB (occurrence: GB)
  Receive Date: 20251010
  Receipt Date: 20251010
  Transmission Date: 20260118
  Serious: Yes (Other)
  Sender: PFIZER
  Company Number: None

PATIENT
  Age: 20 Year
  Sex: Female

DRUGS (1)
  1. MEDROXYPROGESTERONE\MEDROXYPROGESTERONE ACETATE [Suspect]
     Active Substance: MEDROXYPROGESTERONE\MEDROXYPROGESTERONE ACETATE
     Indication: Contraception
     Dosage: 104MG/0.65ML EVERY 13 WEEKS
     Dates: start: 20240604, end: 20241101

REACTIONS (2)
  - Muscle necrosis [Not Recovered/Not Resolved]
  - Fat necrosis [Not Recovered/Not Resolved]

NARRATIVE: CASE EVENT DATE: 20240604
